FAERS Safety Report 8058339-7 (Version None)
Quarter: 2012Q1

REPORT INFORMATION
  Report Type: 
  Country: None (occurrence: None)
  Receive Date: 20120120
  Receipt Date: 20111101
  Transmission Date: 20120608
  Serious: No
  Sender: FDA-Public Use
  Company Number: CA-JNJFOC-20120106874

PATIENT
  Sex: Female
  Weight: 65 kg

DRUGS (2)
  1. REMICADE [Suspect]
     Indication: COLITIS ULCERATIVE
     Route: 042
     Dates: start: 20091117
  2. PENTASA [Concomitant]
     Route: 065

REACTIONS (2)
  - HERPES SIMPLEX [None]
  - IMPAIRED HEALING [None]
